FAERS Safety Report 4428655-6 (Version None)
Quarter: 2004Q3

REPORT INFORMATION
  Report Type: 
  Country: None (occurrence: None)
  Receive Date: 20040818
  Receipt Date: 20030903
  Transmission Date: 20050211
  Serious: Yes (Hospitalization)
  Sender: FDA-Public Use
  Company Number: US-BRISTOL-MYERS SQUIBB COMPANY-12372322

PATIENT
  Age: 72 Year
  Sex: Male
  Weight: 70 kg

DRUGS (4)
  1. TEQUIN [Suspect]
     Indication: INFECTION PROPHYLAXIS
     Dosage: DOSAGE FORM = TABLET (EXPIRATION DATE 01-SEP-2004)
     Route: 048
     Dates: start: 20030902, end: 20030903
  2. CARDIZEM CD [Concomitant]
  3. AVANDIA [Concomitant]
  4. PROTONIX [Concomitant]

REACTIONS (4)
  - ABDOMINAL PAIN UPPER [None]
  - DIARRHOEA [None]
  - DIZZINESS [None]
  - VOMITING [None]
